FAERS Safety Report 23700847 (Version 1)
Quarter: 2024Q2

REPORT INFORMATION
  Report Type: Spontaneous
  Country: US (occurrence: US)
  Receive Date: 20240403
  Receipt Date: 20240403
  Transmission Date: 20240716
  Serious: Yes (Other)
  Sender: FDA-Public Use
  Company Number: US-REGENERON PHARMACEUTICALS, INC.-2024-052565

PATIENT
  Sex: Female

DRUGS (3)
  1. EYLEA HD [Suspect]
     Active Substance: AFLIBERCEPT
     Indication: Product used for unknown indication
     Dosage: 8 MG, RIGHT EYE (FORMULATION: HD VIAL)
     Route: 031
  2. EYLEA HD [Suspect]
     Active Substance: AFLIBERCEPT
     Dosage: 5.7 MG/ 0.05 ML, RIGHT EYE (FORMULATION: HD VIAL)
     Route: 031
  3. EYLEA HD [Suspect]
     Active Substance: AFLIBERCEPT
     Dosage: 6.86 MG/ 0.06 ML, RIGHT EYE (FORMULATION: HD VIAL)
     Route: 031

REACTIONS (2)
  - Paracentesis [Unknown]
  - Incorrect dose administered [Unknown]
